FAERS Safety Report 20895279 (Version 4)
Quarter: 2022Q3

REPORT INFORMATION
  Report Type: Spontaneous
  Country: US (occurrence: US)
  Receive Date: 20220531
  Receipt Date: 20220816
  Transmission Date: 20221027
  Serious: No
  Sender: FDA-Public Use
  Company Number: US-BIOGEN-2022BI01128036

PATIENT
  Age: 74 Year
  Sex: Female

DRUGS (28)
  1. AVONEX [Suspect]
     Active Substance: INTERFERON BETA-1A
     Indication: Multiple sclerosis
     Route: 050
     Dates: start: 19940301
  2. AVONEX [Suspect]
     Active Substance: INTERFERON BETA-1A
  3. AVONEX [Suspect]
     Active Substance: INTERFERON BETA-1A
  4. AVONEX [Suspect]
     Active Substance: INTERFERON BETA-1A
  5. AVONEX [Suspect]
     Active Substance: INTERFERON BETA-1A
  6. AVONEX [Suspect]
     Active Substance: INTERFERON BETA-1A
  7. AVONEX [Suspect]
     Active Substance: INTERFERON BETA-1A
  8. AVONEX [Suspect]
     Active Substance: INTERFERON BETA-1A
  9. AVONEX [Suspect]
     Active Substance: INTERFERON BETA-1A
  10. AVONEX [Suspect]
     Active Substance: INTERFERON BETA-1A
  11. AVONEX [Suspect]
     Active Substance: INTERFERON BETA-1A
  12. AVONEX [Suspect]
     Active Substance: INTERFERON BETA-1A
  13. AVONEX [Suspect]
     Active Substance: INTERFERON BETA-1A
  14. SIMVASTATIN [Concomitant]
     Active Substance: SIMVASTATIN
     Route: 050
  15. TRAVATAN Z [Concomitant]
     Active Substance: TRAVOPROST
     Route: 050
  16. HYDROCHLOROTHIAZIDE [Concomitant]
     Active Substance: HYDROCHLOROTHIAZIDE
     Route: 050
  17. VALACYCLOVIR HYDROCHLORIDE [Concomitant]
     Active Substance: VALACYCLOVIR HYDROCHLORIDE
     Route: 050
  18. ASPIRIN [Concomitant]
     Active Substance: ASPIRIN
     Route: 050
  19. GLUCOSAMINE [Concomitant]
     Active Substance: GLUCOSAMINE
     Route: 050
  20. CHONDROITIN [Concomitant]
     Active Substance: CHONDROITIN
     Route: 050
  21. GABAPENTIN [Concomitant]
     Active Substance: GABAPENTIN
     Route: 050
  22. CHONDROITIN [Concomitant]
     Active Substance: CHONDROITIN
     Route: 050
  23. IBUPROFEN [Concomitant]
     Active Substance: IBUPROFEN
     Route: 050
  24. RANITIDINE HYDROCHLORIDE [Concomitant]
     Active Substance: RANITIDINE HYDROCHLORIDE
     Route: 050
  25. MELATONIN [Concomitant]
     Active Substance: MELATONIN
     Route: 050
  26. BALSALAZIDE DISODIUM [Concomitant]
     Active Substance: BALSALAZIDE DISODIUM
     Route: 050
  27. PANTOPRAZOLE SODIUM [Concomitant]
     Active Substance: PANTOPRAZOLE SODIUM
     Route: 050
  28. PREDNISONE [Concomitant]
     Active Substance: PREDNISONE
     Route: 050

REACTIONS (3)
  - Multiple sclerosis relapse [Not Recovered/Not Resolved]
  - Pneumonia [Not Recovered/Not Resolved]
  - COVID-19 [Not Recovered/Not Resolved]

NARRATIVE: CASE EVENT DATE: 20220523
